FAERS Safety Report 5491442-4 (Version None)
Quarter: 2007Q4

REPORT INFORMATION
  Report Type: 
  Country: None (occurrence: None)
  Receive Date: 20071018
  Receipt Date: 20071012
  Transmission Date: 20080405
  Serious: Yes (Disabling)
  Sender: FDA-Public Use
  Company Number: 056-C5013-07100713

PATIENT
  Age: 64 Year
  Sex: Female
  Weight: 55 kg

DRUGS (4)
  1. CC-5013 (LENALIDOMIDE) (CAPSULES) [Suspect]
     Indication: MULTIPLE MYELOMA
     Dosage: 25 MG, DAILY, ORAL; 10 MG, ORAL
     Route: 048
     Dates: start: 20070531, end: 20070626
  2. CC-5013 (LENALIDOMIDE) (CAPSULES) [Suspect]
     Indication: MULTIPLE MYELOMA
     Dosage: 25 MG, DAILY, ORAL; 10 MG, ORAL
     Route: 048
     Dates: start: 20070719
  3. DEXAMETHASONE TAB [Concomitant]
  4. ASPIRIN [Concomitant]

REACTIONS (8)
  - ARTHRALGIA [None]
  - ASTHENIA [None]
  - BALANCE DISORDER [None]
  - DRUG INTOLERANCE [None]
  - IRRITABILITY [None]
  - MYALGIA [None]
  - ORAL DYSAESTHESIA [None]
  - PAIN IN EXTREMITY [None]
